FAERS Safety Report 5809157-9 (Version None)
Quarter: 2008Q3

REPORT INFORMATION
  Report Type: 
  Country: None (occurrence: None)
  Receive Date: 20080714
  Receipt Date: 20080708
  Transmission Date: 20090109
  Serious: Yes (Other)
  Sender: FDA-Public Use
  Company Number: US-GILEAD-2008-0016902

PATIENT
  Age: 48 Year
  Sex: Female

DRUGS (8)
  1. LETAIRIS [Suspect]
     Dates: end: 20080609
  2. ZOLOFT [Concomitant]
  3. LEVOTHYROXINE SODIUM [Concomitant]
  4. VITAMIN TAB [Concomitant]
  5. MELATONIN [Concomitant]
  6. NORVASC [Concomitant]
  7. LASIX [Concomitant]
  8. POTASSIUM CHLORIDE [Concomitant]

REACTIONS (1)
  - ANGIOEDEMA [None]
